FAERS Safety Report 10668082 (Version 2)
Quarter: 2015Q1

REPORT INFORMATION
  Report Type: Spontaneous
  Country: US (occurrence: US)
  Receive Date: 20141222
  Receipt Date: 20150114
  Transmission Date: 20150720
  Serious: Yes (Hospitalization)
  Sender: FDA-Public Use
  Company Number: US-009507513-1412USA008872

PATIENT
  Age: 63 Year
  Sex: Female

DRUGS (3)
  1. CORTICOSTEROIDS (UNSPECIFIED) [Concomitant]
     Active Substance: UNSPECIFIED INGREDIENT
     Dosage: UNK
  2. ANTIMICROBIAL (UNSPECIFIED) [Concomitant]
     Active Substance: UNSPECIFIED INGREDIENT
     Dosage: UNK
  3. PROVENTIL [Suspect]
     Active Substance: ALBUTEROL
     Indication: DYSPNOEA
     Dosage: 1 DF, Q4H; ONE DOSE EVERY FOUR HOURS
     Route: 055
     Dates: start: 20141117, end: 20141117

REACTIONS (1)
  - Pulmonary congestion [Recovering/Resolving]

NARRATIVE: CASE EVENT DATE: 20141117
